FAERS Safety Report 12313776 (Version 1)
Quarter: 2016Q2

REPORT INFORMATION
  Report Type: Spontaneous
  Country: US (occurrence: None)
  Receive Date: 20160427
  Receipt Date: 20160427
  Transmission Date: 20160815
  Serious: Yes (Disabling)
  Sender: FDA-Public Use
  Company Number: None

PATIENT
  Age: 68 Year
  Sex: Female
  Weight: 54.43 kg

DRUGS (4)
  1. PRESER VISION AREDS 2 [Concomitant]
  2. NAPROXEN. [Concomitant]
     Active Substance: NAPROXEN
  3. ALENDRONATE SODIUM. [Suspect]
     Active Substance: ALENDRONATE SODIUM
     Indication: OSTEOPENIA
     Dosage: 70/75 ML 300 ML 1 BOTTLE ONCE A WEEK BY MOUTH
     Route: 048
     Dates: end: 20151011
  4. PREDNISOLONE ACETATE. [Concomitant]
     Active Substance: PREDNISOLONE ACETATE

REACTIONS (2)
  - Pain in extremity [None]
  - Gait disturbance [None]
